FAERS Safety Report 18340805 (Version 4)
Quarter: 2021Q2

REPORT INFORMATION
  Report Type: Spontaneous
  Country: PT (occurrence: PT)
  Receive Date: 20201003
  Receipt Date: 20210409
  Transmission Date: 20210717
  Serious: Yes (Hospitalization, Other)
  Sender: FDA-Public Use
  Company Number: PT-AUROBINDO-AUR-APL-2020-050078

PATIENT
  Age: 82 Year
  Sex: Female

DRUGS (3)
  1. FLUCONAZOLE. [Suspect]
     Active Substance: FLUCONAZOLE
     Indication: VULVOVAGINAL CANDIDIASIS
     Dosage: UNK
     Route: 048
  2. VARFARINA [Interacting]
     Active Substance: WARFARIN SODIUM
     Indication: ANTICOAGULANT THERAPY
  3. VARFARINA [Interacting]
     Active Substance: WARFARIN SODIUM
     Indication: PULMONARY EMBOLISM
     Dosage: UNK
     Route: 065

REACTIONS (13)
  - Anticoagulation drug level above therapeutic [Recovered/Resolved]
  - Asthenia [Recovered/Resolved]
  - Haematoma [Recovered/Resolved]
  - Acute kidney injury [Recovered/Resolved]
  - Drug interaction [Recovered/Resolved]
  - International normalised ratio increased [Recovered/Resolved]
  - Hypochromic anaemia [Recovered/Resolved]
  - Rash erythematous [Recovered/Resolved]
  - Mucosal discolouration [Recovered/Resolved]
  - Erythema [Recovered/Resolved]
  - Anaemia [Recovered/Resolved]
  - Ecchymosis [Recovered/Resolved]
  - Hypotension [Recovered/Resolved]
